FAERS Safety Report 8837711 (Version 1)
Quarter: 2012Q4

REPORT INFORMATION
  Report Type: 
  Country: ES (occurrence: ES)
  Receive Date: 20121012
  Receipt Date: 20121012
  Transmission Date: 20130627
  Serious: Yes (Other)
  Sender: FDA-Public Use
  Company Number: ES-ABBOTT-12P-144-0994095-00

PATIENT
  Age: 55 Year
  Sex: Female

DRUGS (1)
  1. VALPROIC ACID [Suspect]
     Indication: PARTIAL SEIZURES

REACTIONS (3)
  - Cognitive disorder [Recovering/Resolving]
  - Encephalopathy [Recovering/Resolving]
  - Cerebral atrophy [Recovering/Resolving]
